FAERS Safety Report 9674815 (Version 1)
Quarter: 2013Q4

REPORT INFORMATION
  Report Type: Spontaneous
  Country: US (occurrence: None)
  Receive Date: 20131106
  Receipt Date: 20131106
  Transmission Date: 20140711
  Serious: Yes (Death)
  Sender: FDA-Public Use
  Company Number: None

PATIENT
  Age: 40 Year
  Sex: Male

DRUGS (2)
  1. METHADONE [Suspect]
     Indication: OSTEOARTHRITIS
     Dates: start: 20130726, end: 20130727
  2. XANAX [Suspect]
     Indication: ANXIETY
     Dates: start: 20130726, end: 20130727

REACTIONS (2)
  - Coma [None]
  - Bronchopneumonia [None]
